FAERS Safety Report 25378332 (Version 2)
Quarter: 2025Q2

REPORT INFORMATION
  Report Type: Report from Study
  Country: US (occurrence: US)
  Receive Date: 20250530
  Receipt Date: 20250617
  Transmission Date: 20250717
  Serious: Yes (Other)
  Sender: SUNOVION
  Company Number: US-SMPA-2025SPA006748

PATIENT

DRUGS (2)
  1. ORGOVYX [Suspect]
     Active Substance: RELUGOLIX
     Indication: Prostate cancer
     Route: 048
  2. ORGOVYX [Suspect]
     Active Substance: RELUGOLIX
     Dosage: 120 MG, QD
     Route: 048
     Dates: start: 20250313

REACTIONS (8)
  - Fall [Unknown]
  - Pollakiuria [Unknown]
  - Hiatus hernia [Unknown]
  - Concussion [Unknown]
  - Memory impairment [Unknown]
  - Sleep disorder [Unknown]
  - Weight increased [Unknown]
  - Flushing [Unknown]
